FAERS Safety Report 6600214-6 (Version None)
Quarter: 2010Q1

REPORT INFORMATION
  Report Type: 
  Country: None (occurrence: None)
  Receive Date: 20100224
  Receipt Date: 20100216
  Transmission Date: 20100710
  Serious: Yes (Death)
  Sender: FDA-Public Use
  Company Number: B0635521A

PATIENT
  Sex: Male

DRUGS (11)
  1. ARTIST [Suspect]
     Indication: DRUG USE FOR UNKNOWN INDICATION
     Dates: start: 20091125, end: 20091128
  2. APIXABAN [Suspect]
     Indication: THROMBOSIS PROPHYLAXIS
     Route: 048
     Dates: start: 20091126, end: 20091128
  3. PLAVIX [Concomitant]
     Dates: start: 20091120, end: 20091128
  4. LIPITOR [Concomitant]
     Dates: start: 20091119, end: 20091128
  5. NICORANDIL [Concomitant]
     Route: 065
     Dates: start: 20091120, end: 20091128
  6. TANATRIL [Concomitant]
     Route: 065
     Dates: start: 20091123, end: 20091129
  7. SPIRONOLACTONE [Concomitant]
     Route: 065
     Dates: start: 20091121, end: 20091128
  8. SELBEX [Concomitant]
     Route: 065
     Dates: start: 20091120, end: 20091128
  9. MAGMITT [Concomitant]
     Route: 065
     Dates: start: 20091120, end: 20091128
  10. ZANTAC [Concomitant]
     Route: 065
  11. MYSLEE [Concomitant]
     Route: 065
     Dates: start: 20091123, end: 20091128

REACTIONS (3)
  - ARTERIOSPASM CORONARY [None]
  - CARDIO-RESPIRATORY ARREST [None]
  - SUDDEN CARDIAC DEATH [None]
